FAERS Safety Report 15220541 (Version 1)
Quarter: 2018Q3

REPORT INFORMATION
  Report Type: Spontaneous
  Country: DE (occurrence: DE)
  Receive Date: 20180731
  Receipt Date: 20180731
  Transmission Date: 20181010
  Serious: Yes (Hospitalization, Other)
  Sender: FDA-Public Use
  Company Number: DE-MYLANLABS-2018M1058609

PATIENT
  Sex: Female

DRUGS (8)
  1. MUCOFALK ORANGE [Suspect]
     Active Substance: HERBALS\PLANTAGO OVATA LEAF
     Indication: ABNORMAL FAECES
     Dosage: 5 G, 3 IN 1 DAY
     Route: 048
     Dates: start: 20170101, end: 20171208
  2. ACETYLSALICYLIC ACID [Suspect]
     Active Substance: ASPIRIN
     Indication: PRODUCT USED FOR UNKNOWN INDICATION
     Dosage: 1 IN 1 D
  3. OSVAREN [Suspect]
     Active Substance: CALCIUM ACETATE\MAGNESIUM CARBONATE
     Indication: PRODUCT USED FOR UNKNOWN INDICATION
     Dosage: UNK, TID
  4. PANTOPRAZOLE [Suspect]
     Active Substance: PANTOPRAZOLE
     Indication: PRODUCT USED FOR UNKNOWN INDICATION
     Dosage: 2 IN 1 D
  5. CORTISONE [Suspect]
     Active Substance: CORTISONE\HYDROCORTISONE
     Indication: PRODUCT USED FOR UNKNOWN INDICATION
     Dosage: 4 IN 1 D
  6. NEPHROTRANS [Suspect]
     Active Substance: SODIUM BICARBONATE
     Indication: PRODUCT USED FOR UNKNOWN INDICATION
     Dosage: 4 IN 1 D ; TIME INTERVAL:
  7. MUCOFALK ORANGE [Suspect]
     Active Substance: HERBALS\PLANTAGO OVATA LEAF
     Dosage: 5 G, 4 IN 1 DAY
     Route: 048
     Dates: start: 20171209, end: 20171209
  8. L?THYROXIN                         /00068002/ [Suspect]
     Active Substance: LEVOTHYROXINE SODIUM
     Indication: PRODUCT USED FOR UNKNOWN INDICATION
     Dosage: 125 MG, UNK
     Route: 065

REACTIONS (3)
  - Asthenia [Recovered/Resolved]
  - Hyperkalaemia [Recovered/Resolved]
  - Myalgia [Recovered/Resolved]

NARRATIVE: CASE EVENT DATE: 20171210
